FAERS Safety Report 6567070-6 (Version None)
Quarter: 2010Q1

REPORT INFORMATION
  Report Type: 
  Country: None (occurrence: None)
  Receive Date: 20100202
  Receipt Date: 20100122
  Transmission Date: 20100710
  Serious: Yes (Death)
  Sender: FDA-Public Use
  Company Number: VN-GENENTECH-297349

PATIENT
  Age: 55 Year
  Sex: Female
  Weight: 36 kg

DRUGS (1)
  1. ACTIVASE [Suspect]
     Indication: ISCHAEMIC STROKE
     Dosage: 50 MG, UNK
     Route: 042
     Dates: start: 20100119, end: 20100119

REACTIONS (6)
  - ANAPHYLACTIC SHOCK [None]
  - BLOOD PRESSURE IMMEASURABLE [None]
  - COMA [None]
  - HAEMORRHAGE INTRACRANIAL [None]
  - MUSCLE SPASMS [None]
  - PULMONARY EMBOLISM [None]
